FAERS Safety Report 9749917 (Version 3)
Quarter: 2013Q4

REPORT INFORMATION
  Report Type: Spontaneous
  Country: DE (occurrence: DE)
  Receive Date: 20131212
  Receipt Date: 20131223
  Transmission Date: 20140711
  Serious: Yes (Life-Threatening, Other)
  Sender: FDA-Public Use
  Company Number: DE-ASTRAZENECA-2013SE90123

PATIENT
  Sex: Male
  Weight: 89 kg

DRUGS (10)
  1. BRILIQUE [Suspect]
     Indication: MYOCARDIAL INFARCTION
     Dosage: LOADING DOSAGE
     Route: 048
  2. BRILIQUE [Suspect]
     Indication: MYOCARDIAL INFARCTION
     Route: 048
     Dates: start: 20131204
  3. ASS [Suspect]
     Route: 048
     Dates: start: 20131203
  4. PANTOZOL [Concomitant]
     Indication: ACUTE MYOCARDIAL INFARCTION
     Route: 048
     Dates: start: 20131203
  5. SIMVASTATIN [Concomitant]
     Indication: ACUTE MYOCARDIAL INFARCTION
     Route: 048
     Dates: start: 20131203
  6. CANDESARTAN [Concomitant]
     Indication: CARDIAC FAILURE
     Route: 048
     Dates: start: 20131203
  7. INSPRA [Concomitant]
     Indication: CARDIAC FAILURE
     Route: 048
     Dates: start: 20131203
  8. METFORMIN [Concomitant]
     Indication: DIABETES MELLITUS
     Route: 048
     Dates: start: 20131203
  9. ONGLYZA [Concomitant]
     Indication: DIABETES MELLITUS
     Route: 048
     Dates: start: 20131203
  10. UNACID PD [Concomitant]
     Route: 048

REACTIONS (3)
  - Thrombosis in device [Not Recovered/Not Resolved]
  - Ventricular fibrillation [Unknown]
  - Cerebral haemorrhage [Unknown]
